FAERS Safety Report 22122050 (Version 1)
Quarter: 2023Q1

REPORT INFORMATION
  Report Type: Report from Study
  Country: US (occurrence: US)
  Receive Date: 20230321
  Receipt Date: 20230321
  Transmission Date: 20230418
  Serious: Yes (Other)
  Sender: FDA-Public Use
  Company Number: US-ALLERGAN-2225895US

PATIENT
  Sex: Female

DRUGS (2)
  1. ATOGEPANT [Suspect]
     Active Substance: ATOGEPANT
     Indication: Product used for unknown indication
     Dosage: UNK
  2. ATOGEPANT [Suspect]
     Active Substance: ATOGEPANT
     Dosage: UNK
     Dates: start: 20220313

REACTIONS (2)
  - Cerebrovascular accident [Recovered/Resolved]
  - Migraine [Unknown]

NARRATIVE: CASE EVENT DATE: 20220801
